FAERS Safety Report 4494478-5 (Version None)
Quarter: 2004Q4

REPORT INFORMATION
  Report Type: 
  Country: None (occurrence: None)
  Receive Date: 20041102
  Receipt Date: 20041020
  Transmission Date: 20050328
  Serious: Yes (Other)
  Sender: FDA-Public Use
  Company Number: 2004081416

PATIENT
  Age: 20 Month
  Sex: Male

DRUGS (1)
  1. PHENYTOIN [Suspect]
     Indication: ILL-DEFINED DISORDER
     Dosage: ORAL
     Route: 048
     Dates: start: 20041020

REACTIONS (2)
  - DIFFICULTY IN WALKING [None]
  - SOMNOLENCE [None]
